FAERS Safety Report 6057403-1 (Version None)
Quarter: 2009Q1

REPORT INFORMATION
  Report Type: 
  Country: None (occurrence: None)
  Receive Date: 20090121
  Receipt Date: 20080505
  Transmission Date: 20090719
  Serious: Yes (Other)
  Sender: FDA-Public Use
  Company Number: HQWYE393422JUL05

PATIENT
  Age: 53 Year
  Sex: Female

DRUGS (4)
  1. PREMPRO [Suspect]
     Indication: HORMONE REPLACEMENT THERAPY
     Dosage: ORAL
     Route: 048
     Dates: start: 19940801, end: 20001211
  2. PREMARIN [Suspect]
     Dates: start: 19950801, end: 19970801
  3. PROVERA [Suspect]
     Dates: start: 19940801, end: 19950301
  4. PROVERA [Suspect]
     Dates: start: 19950801, end: 19970801

REACTIONS (1)
  - BREAST CANCER [None]
